FAERS Safety Report 12806201 (Version 1)
Quarter: 2016Q4

REPORT INFORMATION
  Report Type: Report from Study
  Country: US (occurrence: US)
  Receive Date: 20161004
  Receipt Date: 20161004
  Transmission Date: 20170207
  Serious: Yes (Hospitalization)
  Sender: FDA-Public Use
  Company Number: PHHO2012US020771

PATIENT
  Age: 78 Year
  Sex: Male
  Weight: 62.3 kg

DRUGS (1)
  1. GSK1120212 [Suspect]
     Active Substance: TRAMETINIB
     Indication: NEOPLASM
     Dosage: 2 MG, 1D
     Route: 048
     Dates: start: 20121030

REACTIONS (4)
  - Vomiting [Recovered/Resolved]
  - Nausea [Recovered/Resolved]
  - Pyrexia [Recovered/Resolved]
  - Dehydration [Recovered/Resolved]

NARRATIVE: CASE EVENT DATE: 20121112
